FAERS Safety Report 24282829 (Version 1)
Quarter: 2024Q3

REPORT INFORMATION
  Report Type: Spontaneous
  Country: US (occurrence: None)
  Receive Date: 20240902
  Receipt Date: 20240902
  Transmission Date: 20241017
  Serious: Yes (Other)
  Sender: Public
  Company Number: None

PATIENT
  Age: 66 Year
  Sex: Female
  Weight: 72 kg

DRUGS (7)
  1. TIRZEPATIDE [Suspect]
     Active Substance: TIRZEPATIDE
     Indication: Obesity
     Dosage: OTHER QUANTITY : 1 INJECTION(S)?OTHER FREQUENCY : ONCE WEEKLY?OTHER ROUTE : INJECT 150 UNITS WEEKLY?
     Route: 050
     Dates: start: 20240201, end: 20240901
  2. LOSARTAN POTASSIUM [Concomitant]
     Active Substance: LOSARTAN POTASSIUM
  3. ATORVATATIN [Concomitant]
  4. VITAMIN D3 [Concomitant]
     Active Substance: CHOLECALCIFEROL
  5. PRE AND PROBIOTICS [Concomitant]
  6. OMEGA 3 SHISH OIL [Concomitant]
  7. CENTRUM SILVER MULTI-VITAMIN [Concomitant]

REACTIONS (10)
  - Suspected product contamination [None]
  - Oropharyngeal pain [None]
  - Productive cough [None]
  - Ear pain [None]
  - Ophthalmological examination abnormal [None]
  - Respiratory disorder [None]
  - Ocular discomfort [None]
  - Taste disorder [None]
  - Middle insomnia [None]
  - Thyroiditis [None]

NARRATIVE: CASE EVENT DATE: 20240801
